FAERS Safety Report 19161942 (Version 2)
Quarter: 2021Q2

REPORT INFORMATION
  Report Type: Spontaneous
  Country: TW (occurrence: TW)
  Receive Date: 20210421
  Receipt Date: 20210608
  Transmission Date: 20210717
  Serious: Yes (Hospitalization)
  Sender: FDA-Public Use
  Company Number: TW-AMGEN-TWNSP2021059811

PATIENT
  Age: 78 Year
  Sex: Female

DRUGS (2)
  1. ENBREL [Suspect]
     Active Substance: ETANERCEPT
     Dosage: 25MG SC 6 DF/MONTH
     Route: 058
  2. ENBREL [Suspect]
     Active Substance: ETANERCEPT
     Indication: RHEUMATOID ARTHRITIS
     Dosage: 25MG BIW
     Route: 058
     Dates: start: 200908

REACTIONS (4)
  - Joint destruction [Recovering/Resolving]
  - Product use issue [Unknown]
  - Drug ineffective [Recovering/Resolving]
  - Off label use [Unknown]
